FAERS Safety Report 9330693 (Version 2)
Quarter: 2013Q3

REPORT INFORMATION
  Report Type: Spontaneous
  Country: IT (occurrence: IT)
  Receive Date: 20130605
  Receipt Date: 20130805
  Transmission Date: 20140515
  Serious: Yes (Other)
  Sender: FDA-Public Use
  Company Number: IT-ELI_LILLY_AND_COMPANY-IT201305007996

PATIENT
  Age: 45 Year
  Sex: Male
  Weight: 60 kg

DRUGS (6)
  1. CYMBALTA [Suspect]
     Dosage: 30 MG, UNKNOWN
     Route: 048
  2. INVEGA [Suspect]
     Dosage: 3 MG, UNKNOWN
     Route: 048
  3. FELISON [Suspect]
     Dosage: 30 MG, UNKNOWN
     Route: 048
  4. REMERON [Suspect]
     Dosage: 30 MG, UNKNOWN
  5. SEROQUEL [Suspect]
     Dosage: 100 MG, UNKNOWN
  6. ALCOHOL [Suspect]

REACTIONS (3)
  - Intentional self-injury [Unknown]
  - Sedation [Unknown]
  - Intentional overdose [Unknown]
